FAERS Safety Report 11974936 (Version 1)
Quarter: 2016Q1

REPORT INFORMATION
  Report Type: Report from Study
  Country: US (occurrence: US)
  Receive Date: 20160128
  Receipt Date: 20160128
  Transmission Date: 20160526
  Serious: Yes (Hospitalization, Other)
  Sender: FDA-Public Use
  Company Number: US-ABBVIE-11P-163-0715417-01

PATIENT
  Age: 26 Year
  Sex: Male

DRUGS (47)
  1. CIPRO [Concomitant]
     Active Substance: CIPROFLOXACIN HYDROCHLORIDE
     Dates: start: 20100410, end: 20100415
  2. MORPHINE [Concomitant]
     Active Substance: MORPHINE
     Indication: ABDOMINAL PAIN
     Dates: start: 20100410, end: 20100410
  3. CIPRO [Concomitant]
     Active Substance: CIPROFLOXACIN HYDROCHLORIDE
     Dates: start: 20101110
  4. VITAMIN D [Concomitant]
     Active Substance: CHOLECALCIFEROL
     Indication: VITAMIN SUPPLEMENTATION
     Dates: start: 20081228
  5. ISOVUE 370 [Concomitant]
     Active Substance: IOPAMIDOL
     Indication: SCAN WITH CONTRAST
     Dosage: X1
     Dates: start: 20100410, end: 20100410
  6. PROTONIX [Concomitant]
     Active Substance: PANTOPRAZOLE SODIUM
     Indication: ABDOMINAL PAIN
     Dates: start: 201001, end: 201003
  7. FLAGYL [Concomitant]
     Active Substance: METRONIDAZOLE\METRONIDAZOLE HYDROCHLORIDE
     Indication: CROHN^S DISEASE
     Dates: start: 20100218, end: 20100303
  8. FENTANYL. [Concomitant]
     Active Substance: FENTANYL
     Indication: ABDOMINAL PAIN
     Dates: start: 20100410, end: 20100415
  9. CALCIUM GLUCONATE. [Concomitant]
     Active Substance: CALCIUM GLUCONATE
     Indication: HYPOCALCAEMIA
     Dates: start: 20100412, end: 20100412
  10. TYLENOL [Concomitant]
     Active Substance: ACETAMINOPHEN
     Indication: HEADACHE
     Dates: start: 1995
  11. STUARTNATAL 1+1 [Concomitant]
     Indication: VITAMIN SUPPLEMENTATION
     Dates: start: 20081228
  12. PREDNISONE. [Concomitant]
     Active Substance: PREDNISONE
     Dates: start: 20100506, end: 20100512
  13. PREDNISONE. [Concomitant]
     Active Substance: PREDNISONE
     Dates: start: 20100520, end: 20100526
  14. FENTANYL. [Concomitant]
     Active Substance: FENTANYL
     Dates: start: 20101105, end: 20101107
  15. HUMIRA [Suspect]
     Active Substance: ADALIMUMAB
     Route: 058
     Dates: start: 20101206
  16. CIPRO [Concomitant]
     Active Substance: CIPROFLOXACIN HYDROCHLORIDE
     Indication: NASOPHARYNGITIS
     Dates: start: 20081110, end: 20081124
  17. ANALPRAM HC [Concomitant]
     Active Substance: HYDROCORTISONE ACETATE\PRAMOXINE HYDROCHLORIDE
     Indication: HAEMORRHOIDS
     Dates: start: 20081110
  18. IRON PREPARATIONS [Concomitant]
     Active Substance: IRON
     Indication: ANAEMIA
     Dates: start: 20100118, end: 201003
  19. PREDNISONE. [Concomitant]
     Active Substance: PREDNISONE
     Dates: start: 20100513, end: 20100519
  20. FENTANYL. [Concomitant]
     Active Substance: FENTANYL
     Indication: SMALL INTESTINAL OBSTRUCTION
     Dosage: X1
     Dates: start: 20101105, end: 20101105
  21. CIMZIA [Concomitant]
     Active Substance: CERTOLIZUMAB PEGOL
     Indication: CROHN^S DISEASE
     Dates: start: 20100505, end: 20100505
  22. CIMZIA [Concomitant]
     Active Substance: CERTOLIZUMAB PEGOL
     Dosage: X1
     Dates: start: 20100519, end: 20100519
  23. PANTOPRAZOLE [Concomitant]
     Active Substance: PANTOPRAZOLE SODIUM
     Indication: ABDOMINAL PAIN
     Dates: start: 201009
  24. TYLENOL [Concomitant]
     Active Substance: ACETAMINOPHEN
     Indication: NASOPHARYNGITIS
  25. BENADRYL [Concomitant]
     Active Substance: DIPHENHYDRAMINE HYDROCHLORIDE
     Indication: SEASONAL ALLERGY
     Dates: start: 1998
  26. CIPRO [Concomitant]
     Active Substance: CIPROFLOXACIN HYDROCHLORIDE
     Dates: start: 20100218, end: 20100303
  27. CIPRO [Concomitant]
     Active Substance: CIPROFLOXACIN HYDROCHLORIDE
     Dates: start: 20100415, end: 20100424
  28. HYOSCYAMINE SULFATE. [Concomitant]
     Active Substance: HYOSCYAMINE SULFATE
     Indication: ABDOMINAL PAIN
     Dosage: 1/2 - 1 TAB
     Dates: start: 20090210
  29. VITAMIN B12 [Concomitant]
     Active Substance: CYANOCOBALAMIN
     Indication: FATIGUE
     Dates: start: 20091102
  30. MORPHINE [Concomitant]
     Active Substance: MORPHINE
     Indication: SMALL INTESTINAL OBSTRUCTION
  31. FLAGYL [Concomitant]
     Active Substance: METRONIDAZOLE\METRONIDAZOLE HYDROCHLORIDE
     Dates: start: 20100415, end: 20100424
  32. FLAGYL [Concomitant]
     Active Substance: METRONIDAZOLE\METRONIDAZOLE HYDROCHLORIDE
     Dates: start: 20101110
  33. PREDNISONE. [Concomitant]
     Active Substance: PREDNISONE
     Dates: start: 20100422, end: 20100428
  34. ACIPHEX [Concomitant]
     Active Substance: RABEPRAZOLE SODIUM
     Indication: ABDOMINAL PAIN
     Dates: start: 201004, end: 20100430
  35. METHYLPREDNISOLONE. [Concomitant]
     Active Substance: METHYLPREDNISOLONE
     Indication: SMALL INTESTINAL OBSTRUCTION
     Dates: start: 20100411, end: 20100415
  36. PREDNISONE. [Concomitant]
     Active Substance: PREDNISONE
     Dates: start: 20100429, end: 20100505
  37. OMEPRAZOLE. [Concomitant]
     Active Substance: OMEPRAZOLE
     Indication: ABDOMINAL PAIN
     Dates: start: 20100430
  38. FENTANYL. [Concomitant]
     Active Substance: FENTANYL
     Dosage: X1
     Dates: start: 20101107, end: 20101107
  39. HUMIRA [Suspect]
     Active Substance: ADALIMUMAB
     Indication: CROHN^S DISEASE
     Route: 058
     Dates: start: 20071227, end: 20100430
  40. FLAGYL [Concomitant]
     Active Substance: METRONIDAZOLE\METRONIDAZOLE HYDROCHLORIDE
     Indication: SMALL INTESTINAL OBSTRUCTION
     Dates: start: 20100410, end: 20100415
  41. PREDNISONE. [Concomitant]
     Active Substance: PREDNISONE
     Dates: start: 20100527, end: 20100602
  42. HYDROCORTISONE. [Concomitant]
     Active Substance: HYDROCORTISONE
     Indication: DERMATITIS CONTACT
     Dates: start: 20100604, end: 20100612
  43. ALBUTEROL. [Concomitant]
     Active Substance: ALBUTEROL
     Indication: ASTHMA
     Dates: start: 1993
  44. PROCTOFOAM [Concomitant]
     Active Substance: PRAMOXINE HYDROCHLORIDE
     Indication: HAEMORRHOIDS
     Dates: start: 20081110
  45. IRON PREPARATIONS [Concomitant]
     Active Substance: IRON
     Dates: start: 20100312
  46. PREDNISONE. [Concomitant]
     Active Substance: PREDNISONE
     Indication: CROHN^S DISEASE
     Dates: start: 20100415, end: 20100421
  47. PREDNISONE. [Concomitant]
     Active Substance: PREDNISONE
     Dates: start: 20100603, end: 20100609

REACTIONS (1)
  - Intestinal stenosis [Unknown]

NARRATIVE: CASE EVENT DATE: 20100909
